FAERS Safety Report 19115733 (Version 1)
Quarter: 2021Q2

REPORT INFORMATION
  Report Type: Spontaneous
  Country: US (occurrence: US)
  Receive Date: 20210409
  Receipt Date: 20210409
  Transmission Date: 20210717
  Serious: Yes (Hospitalization, Other)
  Sender: FDA-Public Use
  Company Number: US-PFIZER INC-2021375244

PATIENT
  Age: 91 Year
  Sex: Female

DRUGS (3)
  1. HYDROCHLOROTHIAZIDE/TRIAMTERENE [Interacting]
     Active Substance: HYDROCHLOROTHIAZIDE\TRIAMTERENE
     Dosage: UNK, 1X/DAY
  2. SULFAMETHOXAZOLE/TRIMETHOPRIM [Suspect]
     Active Substance: SULFAMETHOXAZOLE\TRIMETHOPRIM
     Dosage: UNK, 2X/DAY,(DOUBLE?STRENGTH, TWICE DAILY)
  3. PROPOXYPHENE. [Concomitant]
     Active Substance: PROPOXYPHENE
     Dosage: UNK, AS NEEDED

REACTIONS (5)
  - Drug interaction [Recovering/Resolving]
  - Hypoglycaemia [Recovering/Resolving]
  - Hypoglycaemic seizure [Unknown]
  - Overdose [Unknown]
  - Mental status changes [Recovering/Resolving]
